FAERS Safety Report 14893743 (Version 2)
Quarter: 2018Q2

REPORT INFORMATION
  Report Type: Spontaneous
  Country: GR (occurrence: GR)
  Receive Date: 20180514
  Receipt Date: 20180530
  Transmission Date: 20180711
  Serious: Yes (Death, Hospitalization, Other)
  Sender: FDA-Public Use
  Company Number: GR-GILEAD-2018-0338002

PATIENT
  Age: 77 Year
  Sex: Male
  Weight: 75 kg

DRUGS (1)
  1. IDELALISIB [Suspect]
     Active Substance: IDELALISIB
     Indication: B-CELL LYMPHOMA
     Route: 065

REACTIONS (4)
  - Disease progression [Fatal]
  - Gastroenteritis salmonella [Recovered/Resolved]
  - Sepsis [Fatal]
  - Gastroenteritis clostridial [Recovered/Resolved]

NARRATIVE: CASE EVENT DATE: 20170913
